FAERS Safety Report 24203824 (Version 1)
Quarter: 2024Q3

REPORT INFORMATION
  Report Type: Spontaneous
  Country: CH (occurrence: CH)
  Receive Date: 20240813
  Receipt Date: 20240813
  Transmission Date: 20241017
  Serious: Yes (Hospitalization)
  Sender: CHEPLAPHARM
  Company Number: None

PATIENT
  Age: 21 Year
  Sex: Male

DRUGS (3)
  1. CLONAZEPAM [Suspect]
     Active Substance: CLONAZEPAM
  2. MORPHINE SULFATE [Suspect]
     Active Substance: MORPHINE SULFATE
  3. XANAX [Suspect]
     Active Substance: ALPRAZOLAM

REACTIONS (3)
  - Toxicity to various agents [Unknown]
  - Respiratory failure [Unknown]
  - Depressed level of consciousness [Unknown]

NARRATIVE: CASE EVENT DATE: 20230829
